FAERS Safety Report 20637447 (Version 1)
Quarter: 2022Q1

REPORT INFORMATION
  Report Type: Spontaneous
  Country: US (occurrence: None)
  Receive Date: 20220324
  Receipt Date: 20220324
  Transmission Date: 20220423
  Serious: No
  Sender: FDA-Public Use
  Company Number: None

PATIENT
  Age: 63 Year
  Sex: Female

DRUGS (2)
  1. PREMARIN VAGINAL [Suspect]
     Active Substance: ESTROGENS, CONJUGATED
     Indication: Vulvovaginal dryness
     Dosage: FREQUENCY : DAILY;?
  2. preman^n vaginal cream [Concomitant]
     Dates: start: 20220316, end: 20220324

REACTIONS (3)
  - Incorrect dose administered [None]
  - Application site swelling [None]
  - Product label confusion [None]

NARRATIVE: CASE EVENT DATE: 20220324
